FAERS Safety Report 7832914-4 (Version None)
Quarter: 2011Q4

REPORT INFORMATION
  Report Type: 
  Country: None (occurrence: None)
  Receive Date: 20111024
  Receipt Date: 20111019
  Transmission Date: 20120403
  Serious: Yes (Other)
  Sender: FDA-Public Use
  Company Number: JP-PFIZER INC-2011252515

PATIENT
  Age: 65 Year

DRUGS (2)
  1. NEUROTROPIN [Concomitant]
     Dosage: UNK
  2. LYRICA [Suspect]
     Dosage: 75 MG DAILY
     Route: 048

REACTIONS (1)
  - HEPATIC FUNCTION ABNORMAL [None]
